FAERS Safety Report 21872232 (Version 1)
Quarter: 2023Q1

REPORT INFORMATION
  Report Type: Spontaneous
  Country: US (occurrence: US)
  Receive Date: 20230117
  Receipt Date: 20230117
  Transmission Date: 20230417
  Serious: Yes (Death, Hospitalization)
  Sender: FDA-Public Use
  Company Number: US-BAYER-2023A002764

PATIENT
  Age: 37 Year
  Sex: Male

DRUGS (7)
  1. ASPIRIN [Suspect]
     Active Substance: ASPIRIN
     Route: 048
  2. LITHIUM [Suspect]
     Active Substance: LITHIUM
  3. OLANZAPINE [Suspect]
     Active Substance: OLANZAPINE
  4. SODIUM HYPOCHLORITE [Suspect]
     Active Substance: SODIUM HYPOCHLORITE
  5. SODIUM BICARBONATE [Suspect]
     Active Substance: SODIUM BICARBONATE
  6. HYDROGEN PEROXIDE [Suspect]
     Active Substance: HYDROGEN PEROXIDE
  7. COAL TAR [Suspect]
     Active Substance: COAL TAR

REACTIONS (3)
  - Completed suicide [Fatal]
  - Toxicity to various agents [Fatal]
  - Intentional overdose [Fatal]
